FAERS Safety Report 7131788-7 (Version None)
Quarter: 2010Q4

REPORT INFORMATION
  Report Type: 
  Country: None (occurrence: None)
  Receive Date: 20101202
  Receipt Date: 20101122
  Transmission Date: 20110411
  Serious: No
  Sender: FDA-Public Use
  Company Number: US-BIOGENIDEC-2010BI041632

PATIENT
  Sex: Male

DRUGS (2)
  1. AVONEX [Suspect]
     Indication: MULTIPLE SCLEROSIS
     Route: 030
     Dates: start: 20010801, end: 20031101
  2. AVONEX [Suspect]
     Route: 030
     Dates: start: 20100401

REACTIONS (4)
  - ABDOMINAL DISCOMFORT [None]
  - DRUG SPECIFIC ANTIBODY PRESENT [None]
  - FATIGUE [None]
  - INFLUENZA LIKE ILLNESS [None]
